FAERS Safety Report 23274594 (Version 1)
Quarter: 2023Q4

REPORT INFORMATION
  Report Type: Spontaneous
  Country: US (occurrence: US)
  Receive Date: 20231208
  Receipt Date: 20231208
  Transmission Date: 20240109
  Serious: Yes (Hospitalization)
  Sender: FDA-Public Use
  Company Number: US-CHEPLA-2023015499

PATIENT
  Sex: Female

DRUGS (2)
  1. OLANZAPINE [Suspect]
     Active Substance: OLANZAPINE
     Dosage: VERY LONG TIME, FOR YEARS
  2. OLANZAPINE [Suspect]
     Active Substance: OLANZAPINE
     Dosage: FUNKY GENERIC BRAND (OF OLANZAPINE),

REACTIONS (2)
  - Tardive dyskinesia [Recovered/Resolved]
  - Cardiac failure [Not Recovered/Not Resolved]
